FAERS Safety Report 8334684-2 (Version None)
Quarter: 2012Q2

REPORT INFORMATION
  Report Type: 
  Country: None (occurrence: None)
  Receive Date: 20120503
  Receipt Date: 20120424
  Transmission Date: 20120825
  Serious: Yes (Other)
  Sender: FDA-Public Use
  Company Number: US-ASTRAZENECA-2011SE44451

PATIENT
  Age: 62 Year
  Sex: Female
  Weight: 77.6 kg

DRUGS (6)
  1. CALCIUM [Concomitant]
     Indication: SUPPLEMENTATION THERAPY
  2. MULTI-VITAMIN [Concomitant]
     Dosage: DAILY
  3. NEXIUM [Suspect]
     Indication: EROSIVE OESOPHAGITIS
     Route: 048
     Dates: start: 20040101, end: 20110701
  4. NEXIUM [Suspect]
     Dosage: DAILY
     Route: 048
  5. ASPIRIN [Concomitant]
     Indication: CARDIOVASCULAR EVENT PROPHYLAXIS
  6. ZOCOR [Concomitant]
     Indication: BLOOD CHOLESTEROL INCREASED
     Route: 048

REACTIONS (8)
  - DYSPEPSIA [None]
  - DRUG DEPENDENCE [None]
  - INTERVERTEBRAL DISC DEGENERATION [None]
  - OSTEOPENIA [None]
  - BONE DISORDER [None]
  - INTENTIONAL DRUG MISUSE [None]
  - ARTHRITIS [None]
  - TYPE 2 DIABETES MELLITUS [None]
